FAERS Safety Report 4907517-1 (Version None)
Quarter: 2006Q1

REPORT INFORMATION
  Report Type: 
  Country: None (occurrence: None)
  Receive Date: 20060210
  Receipt Date: 20060106
  Transmission Date: 20060701
  Serious: Yes (Hospitalization, Other)
  Sender: FDA-Public Use
  Company Number: US-MERCK-0601USA00772

PATIENT
  Age: 84 Year
  Sex: Female
  Weight: 77 kg

DRUGS (7)
  1. VIOXX [Suspect]
     Route: 048
     Dates: start: 20010307, end: 20040108
  2. ACETAMINOPHEN AND HYDROCODONE BITARTRATE [Concomitant]
     Route: 065
  3. DESYREL [Concomitant]
     Route: 065
  4. ACIPHEX [Concomitant]
     Route: 065
  5. DIAZEPAM [Concomitant]
     Route: 065
  6. METHOCARBAMOL [Concomitant]
     Route: 065
  7. ETODOLAC [Concomitant]
     Route: 065

REACTIONS (2)
  - CARDIAC DISORDER [None]
  - CEREBROVASCULAR ACCIDENT [None]
